FAERS Safety Report 15475478 (Version 3)
Quarter: 2019Q1

REPORT INFORMATION
  Report Type: Report from Study
  Country: US (occurrence: US)
  Receive Date: 20181008
  Receipt Date: 20190212
  Transmission Date: 20190417
  Serious: Yes (Hospitalization)
  Sender: FDA-Public Use
  Company Number: US-ACTELION-A-NJ2017-148704

PATIENT
  Age: 45 Year
  Sex: Female
  Weight: 61.22 kg

DRUGS (7)
  1. VELETRI [Suspect]
     Active Substance: EPOPROSTENOL
     Indication: PULMONARY ARTERIAL HYPERTENSION
     Dosage: 53.6 NG/KG, PER MIN
     Route: 042
     Dates: start: 20120221
  2. VELETRI [Suspect]
     Active Substance: EPOPROSTENOL
     Dosage: 46.3 NG/KG, PER MIN
     Route: 042
  3. COUMADIN [Concomitant]
     Active Substance: WARFARIN SODIUM
  4. SILDENAFIL CITRATE. [Concomitant]
     Active Substance: SILDENAFIL CITRATE
  5. OXYGEN. [Concomitant]
     Active Substance: OXYGEN
  6. VELETRI [Suspect]
     Active Substance: EPOPROSTENOL
     Dosage: 56.5 NG/KG, PER MIN
     Route: 042
     Dates: start: 20120221
  7. VELETRI [Suspect]
     Active Substance: EPOPROSTENOL
     Dosage: 44 NG/KG, PER MIN
     Route: 042

REACTIONS (24)
  - Fatigue [Unknown]
  - Chest pain [Unknown]
  - Bone pain [Unknown]
  - Oxygen consumption increased [Unknown]
  - Pain in jaw [Unknown]
  - Hyperthyroidism [Unknown]
  - Weight increased [Unknown]
  - Impaired work ability [Unknown]
  - Dizziness [Unknown]
  - Dyspnoea exertional [Unknown]
  - Nausea [Unknown]
  - Oedema [Recovering/Resolving]
  - Headache [Unknown]
  - Device leakage [Unknown]
  - Arthralgia [Unknown]
  - Presyncope [Unknown]
  - Sinus pain [Unknown]
  - Fluid retention [Unknown]
  - Dyspnoea [Unknown]
  - Palpitations [Unknown]
  - Vomiting [Unknown]
  - Pain [Unknown]
  - Malaise [Unknown]
  - Diarrhoea [Unknown]

NARRATIVE: CASE EVENT DATE: 201805
